FAERS Safety Report 9640329 (Version 1)
Quarter: 2013Q4

REPORT INFORMATION
  Report Type: Spontaneous
  Country: ES (occurrence: ES)
  Receive Date: 20131023
  Receipt Date: 20131023
  Transmission Date: 20140711
  Serious: Yes (Hospitalization, Other)
  Sender: FDA-Public Use
  Company Number: ES-ROCHE-1292554

PATIENT
  Age: 49 Year
  Sex: Male

DRUGS (2)
  1. RITUXIMAB [Suspect]
     Indication: FIBRILLARY GLOMERULONEPHRITIS
     Dosage: 15 DAYS
     Route: 065
  2. PREDNISONE [Concomitant]
     Indication: IMMUNOSUPPRESSION
     Dosage: FOR 1 MONTH AND TAPER
     Route: 065

REACTIONS (1)
  - Interstitial lung disease [Unknown]
